FAERS Safety Report 15821067 (Version 1)
Quarter: 2019Q1

REPORT INFORMATION
  Report Type: Spontaneous
  Country: US (occurrence: US)
  Receive Date: 20190114
  Receipt Date: 20190114
  Transmission Date: 20190417
  Serious: No
  Sender: FDA-Public Use
  Company Number: US-TEVA-2019-US-995010

PATIENT
  Sex: Female

DRUGS (1)
  1. ESTRADIOL TABLETS [Suspect]
     Active Substance: ESTRADIOL
     Route: 065

REACTIONS (2)
  - Rash [Recovered/Resolved]
  - Anal pruritus [Unknown]
